FAERS Safety Report 9647640 (Version 2)
Quarter: 2013Q4

REPORT INFORMATION
  Report Type: Spontaneous
  Country: US (occurrence: US)
  Receive Date: 20131028
  Receipt Date: 20131028
  Transmission Date: 20140711
  Serious: No
  Sender: FDA-Public Use
  Company Number: US-US-EMD SERONO, INC.-7222928

PATIENT
  Age: 53 Year
  Sex: Male
  Weight: 84 kg

DRUGS (4)
  1. SEROSTIM [(SOMATROPIN (RDNA ORIGIN) FOR INJECTION)] [Suspect]
     Indication: CACHEXIA
     Route: 058
     Dates: start: 20130530
  2. SEROSTIM [(SOMATROPIN (RDNA ORIGIN) FOR INJECTION)] [Suspect]
     Indication: HIV WASTING SYNDROME
     Route: 058
     Dates: start: 201308
  3. OXANDROLONE [Suspect]
     Indication: PRODUCT USED FOR UNKNOWN INDICATION
  4. NORVIR [Concomitant]
     Indication: HIV INFECTION
     Route: 048

REACTIONS (3)
  - Hot flush [Unknown]
  - Oedema peripheral [Not Recovered/Not Resolved]
  - Joint swelling [Recovering/Resolving]
